FAERS Safety Report 8775670 (Version 1)
Quarter: 2012Q4

REPORT INFORMATION
  Report Type: 
  Country: BR (occurrence: BR)
  Receive Date: 20120910
  Receipt Date: 20120910
  Transmission Date: 20130627
  Serious: Yes (Other)
  Sender: FDA-Public Use
  Company Number: BR-BRISTOL-MYERS SQUIBB COMPANY-16932386

PATIENT
  Age: 69 Year
  Sex: Female

DRUGS (3)
  1. METFORMIN HCL [Suspect]
     Indication: DIABETES MELLITUS
     Route: 048
     Dates: start: 2011
  2. GLIMEPIRIDE [Concomitant]
     Indication: DIABETES MELLITUS
     Dosage: Tab, 4mg/D
     Dates: start: 2008
  3. INSULIN [Concomitant]
     Dosage: Inj

REACTIONS (10)
  - Retinal haemorrhage [Unknown]
  - Glaucoma [Unknown]
  - Visual impairment [Unknown]
  - Cataract [Unknown]
  - Malaise [Unknown]
  - Blood glucose increased [Unknown]
  - Headache [Unknown]
  - Diarrhoea [Unknown]
  - Vomiting [Unknown]
  - Abdominal distension [Unknown]
